FAERS Safety Report 25117646 (Version 1)
Quarter: 2025Q1

REPORT INFORMATION
  Report Type: Spontaneous
  Country: FR (occurrence: FR)
  Receive Date: 20250325
  Receipt Date: 20250325
  Transmission Date: 20250409
  Serious: Yes (Other)
  Sender: RANBAXY
  Company Number: FR-SUN PHARMACEUTICAL INDUSTRIES LTD-2025RR-500639

PATIENT
  Age: 76 Year
  Sex: Male
  Weight: 80 kg

DRUGS (2)
  1. MORPHINE [Suspect]
     Active Substance: MORPHINE
     Indication: Palliative care
     Dosage: 5 MILLILITER, Q1H
     Route: 058
     Dates: start: 20250115, end: 20250115
  2. MIDAZOLAM [Suspect]
     Active Substance: MIDAZOLAM
     Indication: Palliative care
     Dosage: 5 MILLILITER, Q1H
     Route: 058
     Dates: start: 20250115, end: 20250115

REACTIONS (3)
  - Somnolence [Not Recovered/Not Resolved]
  - Product administration error [Not Recovered/Not Resolved]
  - Wrong rate [Not Recovered/Not Resolved]

NARRATIVE: CASE EVENT DATE: 20250115
